FAERS Safety Report 22632022 (Version 1)
Quarter: 2023Q2

REPORT INFORMATION
  Report Type: Spontaneous
  Country: US (occurrence: US)
  Receive Date: 20230623
  Receipt Date: 20230623
  Transmission Date: 20230722
  Serious: Yes (Other)
  Sender: FDA-Public Use
  Company Number: US-002147023-NVSC2023US137472

PATIENT
  Sex: Female
  Weight: 58 kg

DRUGS (1)
  1. CLOFAZIMINE [Suspect]
     Active Substance: CLOFAZIMINE
     Indication: Mycobacterium abscessus infection
     Dosage: 200 MG, QD
     Route: 048
     Dates: start: 20230426

REACTIONS (2)
  - Acute kidney injury [Unknown]
  - Hypertransaminasaemia [Unknown]
